FAERS Safety Report 5958648-9 (Version None)
Quarter: 2008Q4

REPORT INFORMATION
  Report Type: 
  Country: None (occurrence: None)
  Receive Date: 20081119
  Receipt Date: 20081107
  Transmission Date: 20090506
  Serious: Yes (Other)
  Sender: FDA-Public Use
  Company Number: US-PFIZER INC-2008094367

PATIENT
  Sex: Female

DRUGS (11)
  1. NEURONTIN [Suspect]
     Dates: start: 20040101
  2. METHADONE HCL [Concomitant]
  3. PROMETHAZINE [Concomitant]
  4. LISINOPRIL [Concomitant]
  5. IMDUR [Concomitant]
  6. PERIACTIN [Concomitant]
  7. PRILOSEC [Concomitant]
  8. CELEXA [Concomitant]
  9. MACROBID [Concomitant]
  10. VITAMIN D [Concomitant]
  11. ACIDOPHILUS [Concomitant]

REACTIONS (2)
  - DYSPHAGIA [None]
  - NEOPLASM MALIGNANT [None]
